FAERS Safety Report 10066202 (Version 2)
Quarter: 2014Q2

REPORT INFORMATION
  Report Type: Spontaneous
  Country: US (occurrence: US)
  Receive Date: 20140408
  Receipt Date: 20140528
  Transmission Date: 20141212
  Serious: No
  Sender: FDA-Public Use
  Company Number: US-PFIZER INC-2014096102

PATIENT
  Age: 7 Year
  Sex: Female
  Weight: 18.14 kg

DRUGS (2)
  1. GENOTROPIN MQ [Suspect]
     Indication: GONADAL DYSGENESIS
     Dosage: 0.6 MG, 6 DAYS PER WEEK
     Route: 058
     Dates: start: 20080227, end: 201208
  2. GENOTROPIN MQ [Suspect]
     Dosage: 0.6 MG, DAILY
     Route: 058
     Dates: start: 20140401

REACTIONS (1)
  - Drug ineffective [Unknown]
